FAERS Safety Report 4524173-5 (Version None)
Quarter: 2005Q1

REPORT INFORMATION
  Report Type: 
  Country: None (occurrence: None)
  Receive Date: 20041119
  Receipt Date: 20041029
  Transmission Date: 20050727
  Serious: No
  Sender: FDA-Public Use
  Company Number: PHEH2004US10938

PATIENT
  Age: 37 Year
  Sex: Female
  Weight: 72.6 kg

DRUGS (1)
  1. ZELNORM [Suspect]
     Indication: IRRITABLE BOWEL SYNDROME
     Dosage: 6 MG,  QD,  ORAL
     Route: 048
     Dates: start: 20041011

REACTIONS (2)
  - DIARRHOEA [None]
  - TONGUE BLACK HAIRY [None]
